FAERS Safety Report 25427764 (Version 1)
Quarter: 2025Q2

REPORT INFORMATION
  Report Type: Spontaneous
  Country: CA (occurrence: CA)
  Receive Date: 20250612
  Receipt Date: 20250612
  Transmission Date: 20250716
  Serious: Yes (Life-Threatening, Hospitalization, Other)
  Sender: PFIZER
  Company Number: CA-PFIZER INC-202500117807

PATIENT
  Age: 54 Year
  Sex: Male

DRUGS (2)
  1. HYDROMORPHONE HYDROCHLORIDE [Suspect]
     Active Substance: HYDROMORPHONE HYDROCHLORIDE
  2. FENTANYL [Suspect]
     Active Substance: FENTANYL

REACTIONS (2)
  - Endotracheal intubation [Recovering/Resolving]
  - Anaphylactic reaction [Recovering/Resolving]
